FAERS Safety Report 15768227 (Version 1)
Quarter: 2018Q4

REPORT INFORMATION
  Report Type: Report from Study
  Country: US (occurrence: US)
  Receive Date: 20181227
  Receipt Date: 20181227
  Transmission Date: 20190205
  Serious: Yes (Hospitalization)
  Sender: FDA-Public Use
  Company Number: US-TAKEDA-2018TUS036253

PATIENT
  Sex: Female

DRUGS (1)
  1. BRIGATINIB [Suspect]
     Active Substance: BRIGATINIB
     Indication: LUNG NEOPLASM
     Dosage: 90 MG, QD
     Route: 048
     Dates: start: 201811

REACTIONS (3)
  - Haematoma [Unknown]
  - Fall [Unknown]
  - Infection [Unknown]
